FAERS Safety Report 9519517 (Version 1)
Quarter: 2013Q1

REPORT INFORMATION
  Report Type: Spontaneous
  Country: US (occurrence: None)
  Receive Date: 20130305
  Receipt Date: 20130305
  Transmission Date: 20140127
  Serious: Yes (Hospitalization, Disabling, Other)
  Sender: FDA-Public Use
  Company Number: 163-21880-11121009

PATIENT
  Age: 71 Year
  Sex: Female

DRUGS (21)
  1. REVLIMID (LENALIDOMIDE) (25 MILLIGRAM, CAPSULES) [Suspect]
     Indication: PLASMA CELL MYELOMA
     Dosage: 25 MG, DAILY, DAY 1 - 4, PO
     Route: 048
     Dates: start: 20100126
  2. BORTEZOMIB (BORTEZOMIB) (UNKNOWN) [Concomitant]
  3. DECADRON (DEXAMETHASONE) (TABLETS) [Concomitant]
  4. CYTOXAN (CYCLOPHOSPHAMIDE) (UNKNOWN)? [Concomitant]
  5. PAMIDRONATE (PAMIDRONATE DISODIUM) (UNKNOWN) [Concomitant]
  6. ASPIRIN EC (ACETYLSALICYLIC ACID) (ENTERIC-COATED TABLET) [Concomitant]
  7. ALBUTEROL SULFATE (SALBUTAMOL SULFATE) (108 MICROGRAM, INHALANT) [Concomitant]
  8. ULTRAM (TRAMADOL HYDROCHLORIDE) (TABLETS) [Concomitant]
  9. FAMVIR (FAMCICLOVIR) (TABLETS) [Concomitant]
  10. HYDROCODONE-ACETAMINOPHEN (REMEDEINE) (TABLETS) [Concomitant]
  11. FLEXERIL (CYCLOBENZAPRINE HYDROCHLORIDE) (TABLETS) [Concomitant]
  12. SENOKOT-S (SENOKOT-S) (TABLETS) [Concomitant]
  13. POTASSIUM CHLORIDE CR (POTASSIUM CHLORIDE) (TABLETS) [Concomitant]
  14. HYDROCHLOROTHIAZIDE (HYDROCHLOROTHIAZIDE) (TABLETS) [Concomitant]
  15. MILK OF MAGNESIA (MAGNESIUM HYDROXIDE) (LIQUID) ? [Concomitant]
  16. ZOFRAN-ODT (ONDANSETRON HYDROCHLORIDE) (TABLETS) [Concomitant]
  17. CHOLECALCIFEROL (COLECALCIFEROL) (TABLETS) [Concomitant]
  18. PREMARIN (ESTROGENS CONJUGATED) (CREAM) [Concomitant]
  19. TYLENOL ARTHRITIS PAIN (PARACETAMOL)  (650 MILLIGRAM, UNKNOWN) [Concomitant]
  20. AMLODIPINE (AMLODIPINE) (UNKNOWN) [Concomitant]
  21. ZOCOR (SIMVASTATIN) (TABLETS) [Concomitant]

REACTIONS (4)
  - Plasma cell myeloma [None]
  - Dyspnoea [None]
  - Fatigue [None]
  - Anaemia [None]
